FAERS Safety Report 19068756 (Version 1)
Quarter: 2021Q1

REPORT INFORMATION
  Report Type: Spontaneous
  Country: JP (occurrence: JP)
  Receive Date: 20210329
  Receipt Date: 20210329
  Transmission Date: 20210420
  Serious: Yes (Hospitalization)
  Sender: FDA-Public Use
  Company Number: JP-TEVA-2021-JP-1888791

PATIENT
  Age: 65 Year
  Sex: Male

DRUGS (1)
  1. MODIODAL TABLETS 100MG(MODAFINIL) [Suspect]
     Active Substance: MODAFINIL
     Route: 048

REACTIONS (1)
  - Angina unstable [Unknown]
